FAERS Safety Report 7392376-0 (Version None)
Quarter: 2011Q2

REPORT INFORMATION
  Report Type: 
  Country: None (occurrence: None)
  Receive Date: 20110404
  Receipt Date: 20101029
  Transmission Date: 20111010
  Serious: Yes (Hospitalization)
  Sender: FDA-Public Use
  Company Number: US-BAYER-201016771NA

PATIENT
  Sex: Female
  Weight: 90.909 kg

DRUGS (5)
  1. YASMIN [Suspect]
     Dosage: ONE PILL DAILY
     Route: 048
     Dates: start: 20090101, end: 20090401
  2. IBUPROFEN [Concomitant]
     Dates: start: 20030101, end: 20090101
  3. YAZ [Suspect]
     Indication: CONTRACEPTION
     Dosage: ONE PILL DAILY
     Route: 048
     Dates: start: 20080801, end: 20090101
  4. BEANO [Concomitant]
  5. YASMIN [Suspect]
     Indication: CONTRACEPTION
     Dosage: ONE PILL DAILY - INCOSISTENT REPORT OF STOP DATE (AUG-2008 AND MAY-2008)
     Route: 048
     Dates: start: 20070201, end: 20080101

REACTIONS (4)
  - CHOLECYSTITIS CHRONIC [None]
  - CHOLELITHIASIS [None]
  - VOMITING [None]
  - ABDOMINAL PAIN UPPER [None]
